FAERS Safety Report 25765130 (Version 1)
Quarter: 2025Q3

REPORT INFORMATION
  Report Type: Spontaneous
  Country: IN (occurrence: IN)
  Receive Date: 20250905
  Receipt Date: 20250905
  Transmission Date: 20251021
  Serious: Yes (Life-Threatening, Other)
  Sender: ACCORD
  Company Number: IN-Accord-502782

PATIENT
  Age: 49 Year
  Sex: Male

DRUGS (3)
  1. METHOTREXATE [Suspect]
     Active Substance: METHOTREXATE
     Indication: Squamous cell carcinoma of the oral cavity
     Route: 042
  2. VANCOMYCIN [Suspect]
     Active Substance: VANCOMYCIN
     Indication: Staphylococcal infection
     Route: 042
  3. METHOTREXATE [Suspect]
     Active Substance: METHOTREXATE
     Indication: Squamous cell carcinoma of the oral cavity
     Dosage: DOSE WAS INCREASED
     Route: 042

REACTIONS (6)
  - Stomatitis [Recovering/Resolving]
  - Skin ulcer [Recovering/Resolving]
  - Skin plaque [Recovering/Resolving]
  - Purulent discharge [Recovering/Resolving]
  - Bloody discharge [Recovering/Resolving]
  - Skin mass [Recovering/Resolving]
